FAERS Safety Report 19661807 (Version 2)
Quarter: 2022Q4

REPORT INFORMATION
  Report Type: Spontaneous
  Country: IT (occurrence: IT)
  Receive Date: 20210805
  Receipt Date: 20221222
  Transmission Date: 20230112
  Serious: Yes (Other)
  Sender: FDA-Public Use
  Company Number: IT-PFIZER INC-202100969653

PATIENT
  Age: 80 Year
  Sex: Male

DRUGS (4)
  1. PIROXICAM [Suspect]
     Active Substance: PIROXICAM
     Indication: Varicose vein
     Dosage: UNK
  2. PIROXICAM [Suspect]
     Active Substance: PIROXICAM
     Indication: Osteoarthritis
  3. DIOSMIN [Concomitant]
     Active Substance: DIOSMIN
     Indication: Varicose vein
  4. DIOSMIN [Concomitant]
     Active Substance: DIOSMIN
     Indication: Osteoarthritis

REACTIONS (1)
  - Urinary retention [Recovered/Resolved]
